FAERS Safety Report 21302237 (Version 2)
Quarter: 2022Q4

REPORT INFORMATION
  Report Type: Spontaneous
  Country: US (occurrence: US)
  Receive Date: 20220907
  Receipt Date: 20221014
  Transmission Date: 20230112
  Serious: No
  Sender: FDA-Public Use
  Company Number: US-BIOVITRUM-2022US07984

PATIENT
  Age: 45 Year
  Sex: Male

DRUGS (2)
  1. KINERET [Suspect]
     Active Substance: ANAKINRA
     Indication: Pyrexia
     Dates: start: 202206
  2. KINERET [Suspect]
     Active Substance: ANAKINRA
     Dates: start: 20220630

REACTIONS (11)
  - Malaise [Unknown]
  - Eye irritation [Unknown]
  - Throat irritation [Unknown]
  - Familial mediterranean fever [Unknown]
  - Arthralgia [Unknown]
  - Myalgia [Unknown]
  - Injection site pain [Not Recovered/Not Resolved]
  - Injection site pruritus [Unknown]
  - Injection site bruising [Unknown]
  - Product dose omission in error [Unknown]
  - Off label use [Not Recovered/Not Resolved]

NARRATIVE: CASE EVENT DATE: 20220630
